FAERS Safety Report 8376386-2 (Version None)
Quarter: 2012Q2

REPORT INFORMATION
  Report Type: 
  Country: None (occurrence: None)
  Receive Date: 20120522
  Receipt Date: 20120518
  Transmission Date: 20120825
  Serious: Yes (Death, Other)
  Sender: FDA-Public Use
  Company Number: PHHY2012US042834

PATIENT
  Age: 20 Year
  Sex: Female

DRUGS (2)
  1. ENOXAPARIN [Suspect]
     Indication: THROMBOSIS
     Route: 042
  2. TISSUE PLASMINOGEN ACTIVATOR, RECOMBINATIVE [Concomitant]

REACTIONS (5)
  - DEATH [None]
  - HEPATIC VEIN THROMBOSIS [None]
  - GASTROINTESTINAL OEDEMA [None]
  - MESENTERIC HAEMORRHAGE [None]
  - SUBDURAL HAEMATOMA [None]
